FAERS Safety Report 24572519 (Version 2)
Quarter: 2024Q4

REPORT INFORMATION
  Report Type: Spontaneous
  Country: IN (occurrence: IN)
  Receive Date: 20241101
  Receipt Date: 20241122
  Transmission Date: 20250115
  Serious: Yes (Hospitalization, Other)
  Sender: TORRENT PHARMA INC.
  Company Number: IN-MLMSERVICE-20241015-PI228108-00285-1

PATIENT
  Age: 64 Year
  Sex: Male

DRUGS (1)
  1. RISPERIDONE [Suspect]
     Active Substance: RISPERIDONE
     Indication: Delusion
     Dosage: INITIATED AND TITRATED TO 6 MG BY A PRIVATE PSYCHIATRIST OVER ONE MONTH
     Route: 065

REACTIONS (1)
  - Pemphigoid [Recovered/Resolved]
